FAERS Safety Report 8683608 (Version 4)
Quarter: 2013Q3

REPORT INFORMATION
  Report Type: Report from Study
  Country: CZ (occurrence: CZ)
  Receive Date: 20120726
  Receipt Date: 20130910
  Transmission Date: 20140515
  Serious: Yes (Hospitalization)
  Sender: FDA-Public Use
  Company Number: CZ-CELGENEUS-217-C5013-12071606

PATIENT
  Age: 36 Year
  Sex: Male
  Weight: 69 kg

DRUGS (3)
  1. CC-5013 [Suspect]
     Indication: DIFFUSE LARGE B-CELL LYMPHOMA
     Dosage: 25 MILLIGRAM
     Route: 048
     Dates: start: 20120703, end: 20120716
  2. CC-5013 [Suspect]
     Dosage: 25 MILLIGRAM
     Route: 048
     Dates: start: 20120801
  3. ALGIFEN [Concomitant]
     Indication: ABDOMINAL PAIN
     Route: 048
     Dates: start: 20120716

REACTIONS (1)
  - Ileus [Recovered/Resolved]
